FAERS Safety Report 8555004-4 (Version None)
Quarter: 2012Q3

REPORT INFORMATION
  Report Type: 
  Country: None (occurrence: None)
  Receive Date: 20120731
  Receipt Date: 20120724
  Transmission Date: 20120928
  Serious: Yes (Other)
  Sender: FDA-Public Use
  Company Number: US-ABBOTT-12P-163-0913444-00

PATIENT
  Sex: Female
  Weight: 62.198 kg

DRUGS (5)
  1. SYNTHROID [Suspect]
     Dates: end: 20120201
  2. SYNTHROID [Suspect]
     Indication: PRODUCT USED FOR UNKNOWN INDICATION
     Dates: start: 20090201
  3. SYNTHROID [Suspect]
     Dates: start: 20120201
  4. SYNTHROID [Suspect]
  5. RECLAST [Concomitant]
     Indication: OSTEOPOROSIS

REACTIONS (7)
  - DIZZINESS [None]
  - FATIGUE [None]
  - BRAIN NEOPLASM BENIGN [None]
  - HEART RATE DECREASED [None]
  - WEIGHT INCREASED [None]
  - ALOPECIA [None]
  - FEELING OF DESPAIR [None]
